FAERS Safety Report 8808701 (Version 1)
Quarter: 2012Q4

REPORT INFORMATION
  Report Type: Spontaneous
  Country: US (occurrence: None)
  Receive Date: 20120921
  Receipt Date: 20120921
  Transmission Date: 20130627
  Serious: Yes (Other)
  Sender: FDA-Public Use
  Company Number: None

PATIENT
  Age: 32 Year
  Sex: Male
  Weight: 100.25 kg

DRUGS (2)
  1. ZOSYN [Suspect]
     Route: 042
     Dates: start: 20120815, end: 20120820
  2. VANCOMYCIN [Suspect]
     Route: 042

REACTIONS (1)
  - Blood creatinine increased [None]
